FAERS Safety Report 5763367-8 (Version None)
Quarter: 2008Q2

REPORT INFORMATION
  Report Type: 
  Country: None (occurrence: None)
  Receive Date: 20080609
  Receipt Date: 20080602
  Transmission Date: 20081010
  Serious: Yes (Other)
  Sender: FDA-Public Use
  Company Number: NL-BOEHRINGER INGELHEIM GMBH, GERMANY-2008-NL-00319NL

PATIENT
  Sex: Female
  Weight: 60 kg

DRUGS (7)
  1. SPIRIVA [Suspect]
     Indication: EMPHYSEMA
  2. COMBIVENT [Suspect]
  3. COMBIVENT [Suspect]
  4. THEOLAIR [Concomitant]
  5. FOLIC ACID [Concomitant]
  6. VITAMIN D [Concomitant]
  7. ACETAZOLAMIDE [Concomitant]

REACTIONS (8)
  - ANOREXIA [None]
  - CATARACT [None]
  - CONSTIPATION [None]
  - DIZZINESS [None]
  - FATIGUE [None]
  - LUNG NEOPLASM MALIGNANT [None]
  - SUDDEN ONSET OF SLEEP [None]
  - WEIGHT DECREASED [None]
